FAERS Safety Report 13129497 (Version 1)
Quarter: 2017Q1

REPORT INFORMATION
  Report Type: Spontaneous
  Country: US (occurrence: US)
  Receive Date: 20170117
  Receipt Date: 20170117
  Transmission Date: 20170428
  Serious: Yes (Death)
  Sender: FDA-Public Use
  Company Number: None

PATIENT
  Sex: Male

DRUGS (11)
  1. ASPIRIN. [Concomitant]
     Active Substance: ASPIRIN
  2. NOVOLIN [Concomitant]
     Active Substance: INSULIN HUMAN
  3. TRAMADOL. [Concomitant]
     Active Substance: TRAMADOL
  4. ONDANSETRON [Concomitant]
     Active Substance: ONDANSETRON
  5. BENZONATATE. [Concomitant]
     Active Substance: BENZONATATE
  6. SUTENT [Suspect]
     Active Substance: SUNITINIB MALATE
     Indication: RENAL CANCER
     Route: 048
     Dates: start: 20161119
  7. SIMVASTATIN. [Concomitant]
     Active Substance: SIMVASTATIN
  8. HCTZ [Concomitant]
     Active Substance: HYDROCHLOROTHIAZIDE
  9. HYDROCODONE [Concomitant]
     Active Substance: HYDROCODONE
  10. LEVEMIR [Concomitant]
     Active Substance: INSULIN DETEMIR
  11. FUROSEMIDE. [Concomitant]
     Active Substance: FUROSEMIDE

REACTIONS (1)
  - Death [None]
